FAERS Safety Report 8490066-4 (Version None)
Quarter: 2012Q3

REPORT INFORMATION
  Report Type: 
  Country: None (occurrence: None)
  Receive Date: 20120705
  Receipt Date: 20120703
  Transmission Date: 20120928
  Serious: No
  Sender: FDA-Public Use
  Company Number: US-PFIZER INC-2012138609

PATIENT
  Sex: Female
  Weight: 114 kg

DRUGS (3)
  1. ACCUPRIL [Suspect]
     Indication: HYPERTENSION
     Dosage: 20 MG, ONCE DAILY
     Route: 048
     Dates: start: 20120522, end: 20120611
  2. M.V.I. [Concomitant]
     Dosage: UNK
  3. FISH OIL [Concomitant]
     Dosage: UNK, ONCE DAILY

REACTIONS (3)
  - EPISTAXIS [None]
  - COUGH [None]
  - VOMITING [None]
